FAERS Safety Report 20936816 (Version 13)
Quarter: 2025Q4

REPORT INFORMATION
  Report Type: Report from Study
  Country: CO (occurrence: CO)
  Receive Date: 20220609
  Receipt Date: 20251124
  Transmission Date: 20260118
  Serious: Yes (Hospitalization, Other)
  Sender: TAKEDA
  Company Number: CO-TAKEDA-2020TUS030413

PATIENT
  Age: 55 Year
  Sex: Female
  Weight: 79 kg

DRUGS (1)
  1. VEDOLIZUMAB [Suspect]
     Active Substance: VEDOLIZUMAB
     Indication: Crohn^s disease
     Dosage: 300 MILLIGRAM

REACTIONS (16)
  - Cerebral infarction [Unknown]
  - Central nervous system infection [Unknown]
  - COVID-19 [Recovering/Resolving]
  - Transient ischaemic attack [Not Recovered/Not Resolved]
  - Alopecia [Not Recovered/Not Resolved]
  - Respiratory tract congestion [Unknown]
  - Pain [Not Recovered/Not Resolved]
  - Viral infection [Recovering/Resolving]
  - Diarrhoea [Unknown]
  - Discouragement [Not Recovered/Not Resolved]
  - Discomfort [Unknown]
  - Abdominal pain [Unknown]
  - Dyspnoea [Unknown]
  - Blood pressure increased [Unknown]
  - Influenza like illness [Unknown]
  - Influenza [Unknown]

NARRATIVE: CASE EVENT DATE: 20220818
